FAERS Safety Report 7007014-6 (Version None)
Quarter: 2010Q3

REPORT INFORMATION
  Report Type: 
  Country: None (occurrence: None)
  Receive Date: 20100915
  Receipt Date: 20100831
  Transmission Date: 20110219
  Serious: Yes (Hospitalization, Other)
  Sender: FDA-Public Use
  Company Number: 2010SP046920

PATIENT
  Age: 63 Year
  Sex: Male

DRUGS (14)
  1. ASMANEX TWISTHALER [Suspect]
     Indication: PRODUCT USED FOR UNKNOWN INDICATION
     Dosage: UNK; INH
     Route: 055
  2. NASONEX [Suspect]
     Indication: PRODUCT USED FOR UNKNOWN INDICATION
  3. FORADIL [Suspect]
     Indication: ASTHMA
     Dosage: 12 MCG BID INH
     Route: 055
     Dates: start: 20080601, end: 20080601
  4. FORADIL [Suspect]
     Indication: MULTIPLE ALLERGIES
     Dosage: 12 MCG BID INH
     Route: 055
     Dates: start: 20080601, end: 20080601
  5. SEREVENT [Suspect]
     Indication: PRODUCT USED FOR UNKNOWN INDICATION
  6. NASACORT [Suspect]
     Indication: PRODUCT USED FOR UNKNOWN INDICATION
  7. PREDNISONE [Suspect]
     Indication: PRODUCT USED FOR UNKNOWN INDICATION
  8. XYZAL [Concomitant]
  9. MUCINEX [Concomitant]
  10. PULMICORT [Concomitant]
  11. CLONIDINE [Concomitant]
  12. DIOVAN [Concomitant]
  13. ACIPHEX [Concomitant]
  14. ALBUTEROL [Concomitant]

REACTIONS (6)
  - ENDOCARDITIS [None]
  - EPISTAXIS [None]
  - INFECTION [None]
  - RESPIRATORY TRACT INFLAMMATION [None]
  - STAPHYLOCOCCAL INFECTION [None]
  - THROAT IRRITATION [None]
